FAERS Safety Report 24528132 (Version 2)
Quarter: 2024Q4

REPORT INFORMATION
  Report Type: Spontaneous
  Country: FR (occurrence: FR)
  Receive Date: 20241021
  Receipt Date: 20241104
  Transmission Date: 20250114
  Serious: Yes (Other)
  Sender: ROCHE
  Company Number: None

PATIENT
  Age: 33 Year
  Sex: Female

DRUGS (17)
  1. TRASTUZUMAB [Suspect]
     Active Substance: TRASTUZUMAB
     Indication: HER2 positive breast cancer
     Route: 065
     Dates: start: 200605, end: 200705
  2. TRASTUZUMAB [Suspect]
     Active Substance: TRASTUZUMAB
     Dosage: 4 CYCLES
     Route: 065
     Dates: start: 200801
  3. TRASTUZUMAB [Suspect]
     Active Substance: TRASTUZUMAB
     Route: 065
     Dates: start: 200912
  4. CAPECITABINE [Suspect]
     Active Substance: CAPECITABINE
     Indication: HER2 positive breast cancer
     Route: 065
     Dates: start: 200708
  5. BEVACIZUMAB [Suspect]
     Active Substance: BEVACIZUMAB
     Indication: HER2 positive breast cancer
     Dosage: BEVACIZUMAB (ADMINISTRATION ON DAYS 1 AND 15 AT THE DOSE OF 10 MG/KG)
     Route: 065
     Dates: start: 200904
  6. VINORELBINE [Suspect]
     Active Substance: VINORELBINE TARTRATE
     Indication: Metastasis
     Dosage: UNK
     Route: 050
     Dates: start: 200605
  7. VINORELBINE [Suspect]
     Active Substance: VINORELBINE TARTRATE
     Indication: Adenocarcinoma
     Route: 065
  8. VINORELBINE [Suspect]
     Active Substance: VINORELBINE TARTRATE
     Indication: HER2 positive breast cancer
  9. CYCLOPHOSPHAMIDE [Suspect]
     Active Substance: CYCLOPHOSPHAMIDE
     Indication: HER2 positive breast cancer
     Dosage: SIX COURSES
     Route: 065
     Dates: start: 200509
  10. CYCLOPHOSPHAMIDE [Suspect]
     Active Substance: CYCLOPHOSPHAMIDE
     Route: 065
     Dates: start: 201006
  11. LAPATINIB [Suspect]
     Active Substance: LAPATINIB
     Indication: HER2 positive breast cancer
     Route: 065
     Dates: start: 200708
  12. DOCETAXEL [Suspect]
     Active Substance: DOCETAXEL
     Indication: HER2 positive breast cancer
     Dosage: SIX COURSES
     Route: 065
     Dates: start: 200509
  13. DOCETAXEL [Suspect]
     Active Substance: DOCETAXEL
     Dosage: 4 CYCLES
     Route: 065
     Dates: start: 200801
  14. PACLITAXEL [Suspect]
     Active Substance: PACLITAXEL
     Indication: HER2 positive breast cancer
     Dosage: PACLITAXEL (ADMINISTRATION ON DAYS 1, 8, AND 15 EVERY 4 WEEKS AT THE DOSE OF 90 MG/M2)
     Route: 065
     Dates: start: 200904
  15. CARBOPLATIN [Suspect]
     Active Substance: CARBOPLATIN
     Indication: HER2 positive breast cancer
     Dosage: 4 CYCLES
     Route: 065
     Dates: start: 200801
  16. CARBOPLATIN [Suspect]
     Active Substance: CARBOPLATIN
     Route: 065
     Dates: start: 200912
  17. METHOTREXATE [Concomitant]
     Active Substance: METHOTREXATE
     Indication: HER2 positive breast cancer
     Route: 065
     Dates: start: 201006

REACTIONS (7)
  - Neutropenia [Unknown]
  - Toxicity to various agents [Unknown]
  - Hypertension [Unknown]
  - Alopecia [Unknown]
  - Asthenia [Unknown]
  - Metastasis [Unknown]
  - Diarrhoea [Unknown]
